FAERS Safety Report 11099712 (Version 2)
Quarter: 2015Q3

REPORT INFORMATION
  Report Type: Spontaneous
  Country: PL (occurrence: PL)
  Receive Date: 20150508
  Receipt Date: 20150929
  Transmission Date: 20151125
  Serious: Yes (Disabling, Other)
  Sender: FDA-Public Use
  Company Number: PL-AMGEN-POLSP2015044224

PATIENT
  Age: 61 Year
  Sex: Male
  Weight: 68 kg

DRUGS (3)
  1. POLPRAZOL                          /00661201/ [Concomitant]
     Dosage: 20 MG, UNK
  2. ENBREL [Suspect]
     Active Substance: ETANERCEPT
     Indication: ANKYLOSING SPONDYLITIS
     Dosage: 50 MG, UNK
     Route: 058
     Dates: start: 20140802, end: 20150409
  3. AGLAN [Concomitant]
     Dosage: 15 MG, UNK

REACTIONS (1)
  - Sarcoma [Recovering/Resolving]

NARRATIVE: CASE EVENT DATE: 201409
